FAERS Safety Report 4382552-3 (Version None)
Quarter: 2004Q2

REPORT INFORMATION
  Report Type: 
  Country: None (occurrence: None)
  Receive Date: 20040610
  Receipt Date: 20040527
  Transmission Date: 20050107
  Serious: Yes (Other)
  Sender: FDA-Public Use
  Company Number: 200410394BCA

PATIENT
  Sex: Female

DRUGS (13)
  1. PLASBUMIN-5 [Suspect]
     Dosage: 250 ML, INTRAVENOUS
     Route: 042
     Dates: start: 19900822
  2. PLASBUMIN-5 [Suspect]
     Dosage: 250 ML, INTRAVENOUS
     Route: 042
     Dates: start: 19990822
  3. BLOOD AND BLOOD PRODUCTS (RED BLOOD CELLS) [Suspect]
     Dosage: SEE IMAGE
     Route: 042
     Dates: start: 19900820
  4. BLOOD AND BLOOD PRODUCTS (RED BLOOD CELLS) [Suspect]
     Dosage: SEE IMAGE
     Route: 042
     Dates: start: 19900820
  5. BLOOD AND BLOOD PRODUCTS (RED BLOOD CELLS) [Suspect]
     Dosage: SEE IMAGE
     Route: 042
     Dates: start: 19900820
  6. BLOOD AND BLOOD PRODUCTS (RED BLOOD CELLS) [Suspect]
     Dosage: SEE IMAGE
     Route: 042
     Dates: start: 19900820
  7. BLOOD AND BLOOD PRODUCTS (RED BLOOD CELLS) [Suspect]
     Dosage: SEE IMAGE
     Route: 042
     Dates: start: 19900827
  8. BLOOD AND BLOOD PRODUCTS (RED BLOOD CELLS) [Suspect]
     Dosage: SEE IMAGE
     Route: 042
     Dates: start: 19900827
  9. BLOOD AND BLOOD PRODUCTS (RED BLOOD CELLS) [Suspect]
  10. BLOOD AND BLOOD PRODUCTS (RED BLOOD CELLS) [Suspect]
  11. BLOOD AND BLOOD PRODUCTS (RED BLOOD CELLS) [Suspect]
  12. BLOOD AND BLOOD PRODUCTS (RED BLOOD CELLS) [Suspect]
  13. BLOOD AND BLOOD PRODUCTS (RED BLOOD CELLS) [Suspect]

REACTIONS (1)
  - HEPATITIS C POSITIVE [None]
